FAERS Safety Report 4999297-9 (Version None)
Quarter: 2006Q2

REPORT INFORMATION
  Report Type: 
  Country: None (occurrence: None)
  Receive Date: 20060509
  Receipt Date: 20060426
  Transmission Date: 20061013
  Serious: Yes (Hospitalization)
  Sender: FDA-Public Use
  Company Number: 224458

PATIENT
  Sex: Female

DRUGS (10)
  1. AVASTIN [Suspect]
     Indication: PANCREATIC CARCINOMA METASTATIC
     Dosage: 10 MG/KG, DAYS 1+15, INTRAVENOUS
     Route: 042
     Dates: start: 20050824, end: 20060328
  2. GEMCITABINE [Suspect]
     Indication: PANCREATIC CARCINOMA METASTATIC
     Dosage: 1000 MG/KG, DAYS 1+15, INTRAVENOUS
     Route: 042
     Dates: start: 20050824, end: 20060425
  3. OXALIPLATIN (OXALIPLATIN) [Suspect]
     Indication: PANCREATIC CARCINOMA METASTATIC
     Dosage: 100 MG, INTRAVENOUS
     Route: 042
     Dates: start: 20050824, end: 20060426
  4. ALDACTONE [Concomitant]
  5. DILAUDID [Concomitant]
  6. LASIX [Concomitant]
  7. MS CONTIN [Concomitant]
  8. NORVASC [Concomitant]
  9. TENORMIN [Concomitant]
  10. COMPAZINE [Concomitant]

REACTIONS (2)
  - ASPARTATE AMINOTRANSFERASE INCREASED [None]
  - BODY TEMPERATURE INCREASED [None]
